FAERS Safety Report 24743718 (Version 1)
Quarter: 2024Q4

REPORT INFORMATION
  Report Type: Spontaneous
  Country: DE (occurrence: DE)
  Receive Date: 20241217
  Receipt Date: 20241217
  Transmission Date: 20250114
  Serious: Yes (Other)
  Sender: FRESENIUS KABI
  Company Number: DE-RECORDATI-2024009423

PATIENT
  Sex: Female

DRUGS (3)
  1. IRINOTECAN [Suspect]
     Active Substance: IRINOTECAN
     Indication: Neuroblastoma
     Dosage: UNK
     Dates: start: 20240801, end: 20240806
  2. THIOTEPA [Suspect]
     Active Substance: THIOTEPA
     Indication: Neuroblastoma
     Dosage: UNK
     Dates: start: 20240801, end: 20240806
  3. DINUTUXIMAB BETA [Suspect]
     Active Substance: DINUTUXIMAB BETA
     Indication: Neuroblastoma
     Dosage: UNK?FOA-SOLUTION FOR INFUSION
     Dates: start: 20240801, end: 20240806

REACTIONS (5)
  - Cytokine release syndrome [Unknown]
  - Polyserositis [Unknown]
  - Acute kidney injury [Unknown]
  - Off label use [Recovered/Resolved]
  - Hypoglycaemia [Unknown]

NARRATIVE: CASE EVENT DATE: 20240801
